FAERS Safety Report 6610932-1 (Version None)
Quarter: 2010Q1

REPORT INFORMATION
  Report Type: 
  Country: None (occurrence: None)
  Receive Date: 20100222
  Receipt Date: 20100125
  Transmission Date: 20100710
  Serious: Yes (Other)
  Sender: FDA-Public Use
  Company Number: 2010-00001

PATIENT
  Age: 15 Year
  Sex: Female
  Weight: 47.6277 kg

DRUGS (2)
  1. C+C ADVANTAGE ACNE CONTROL MOISTURIZER (SA 0.5%) [Suspect]
     Indication: ACNE
     Dosage: DAILY
     Dates: start: 20100117, end: 20100124
  2. C+C ADVANTAGE FAST CLEARING SPOT TREATMENT (SA 2%) [Suspect]
     Indication: ACNE
     Dosage: DAILY
     Dates: start: 20100117, end: 20100124

REACTIONS (3)
  - BLINDNESS [None]
  - BURNING SENSATION [None]
  - FOAMING AT MOUTH [None]
